FAERS Safety Report 19898795 (Version 4)
Quarter: 2022Q1

REPORT INFORMATION
  Report Type: Spontaneous
  Country: US (occurrence: US)
  Receive Date: 20210929
  Receipt Date: 20220129
  Transmission Date: 20220424
  Serious: No
  Sender: FDA-Public Use
  Company Number: US-LUPIN PHARMACEUTICALS INC.-2021-18173

PATIENT
  Age: 43 Year
  Sex: Male
  Weight: 83.91 kg

DRUGS (6)
  1. PHENELZINE [Suspect]
     Active Substance: PHENELZINE
     Indication: Depression
     Dosage: 15 MG
     Route: 048
     Dates: start: 20210518, end: 20210720
  2. PHENELZINE [Suspect]
     Active Substance: PHENELZINE
     Indication: Anxiety
  3. PHENELZINE SULFATE [Suspect]
     Active Substance: PHENELZINE SULFATE
     Indication: Depression
     Dosage: UNK
     Route: 048
  4. PHENELZINE SULFATE [Suspect]
     Active Substance: PHENELZINE SULFATE
     Indication: Anxiety
     Dosage: UNK, 82.5MG, FIVE AND A HALF 15MG TABLETS ONCE A DAY BY MOUTH
     Route: 048
  5. KLONOPIN [Concomitant]
     Active Substance: CLONAZEPAM
     Indication: Product used for unknown indication
     Dosage: UNK
     Route: 065
  6. AMBIEN [Concomitant]
     Active Substance: ZOLPIDEM TARTRATE
     Indication: Product used for unknown indication
     Dosage: UNK
     Route: 065

REACTIONS (3)
  - Adverse event [Recovered/Resolved]
  - Drug ineffective [Unknown]
  - Insomnia [Recovered/Resolved]

NARRATIVE: CASE EVENT DATE: 20210601
